FAERS Safety Report 13595264 (Version 3)
Quarter: 2017Q3

REPORT INFORMATION
  Report Type: Spontaneous
  Country: DE (occurrence: DE)
  Receive Date: 20170531
  Receipt Date: 20170727
  Transmission Date: 20171127
  Serious: Yes (Hospitalization)
  Sender: FDA-Public Use
  Company Number: DE-ROCHE-1941182

PATIENT
  Sex: Male

DRUGS (4)
  1. ASPIRIN. [Concomitant]
     Active Substance: ASPIRIN
  2. IBUPROFEN. [Concomitant]
     Active Substance: IBUPROFEN
  3. DICLOFENAC [Concomitant]
     Active Substance: DICLOFENAC
  4. XOLAIR [Suspect]
     Active Substance: OMALIZUMAB
     Indication: ASPERGILLUS INFECTION
     Route: 065
     Dates: end: 2016

REACTIONS (14)
  - Pyrexia [Unknown]
  - Dyspnoea [Unknown]
  - Myalgia [Unknown]
  - Dizziness [Unknown]
  - Heart rate increased [Unknown]
  - Urticaria [Unknown]
  - Nasopharyngitis [Unknown]
  - Nasal congestion [Unknown]
  - Product use in unapproved indication [Unknown]
  - Arthralgia [Unknown]
  - Asthenia [Unknown]
  - Gastrointestinal disorder [Unknown]
  - Discomfort [Unknown]
  - Musculoskeletal stiffness [Unknown]

NARRATIVE: CASE EVENT DATE: 2017
